FAERS Safety Report 21824920 (Version 1)
Quarter: 2023Q1

REPORT INFORMATION
  Report Type: Spontaneous
  Country: US (occurrence: US)
  Receive Date: 20230105
  Receipt Date: 20230105
  Transmission Date: 20230417
  Serious: No
  Sender: FDA-Public Use
  Company Number: US-009507513-2301USA000680

PATIENT
  Age: 30 Year
  Sex: Male

DRUGS (1)
  1. TEMODAR [Suspect]
     Active Substance: TEMOZOLOMIDE
     Indication: Metastatic malignant melanoma
     Dosage: 150 MILLIGRAM/SQ ORALLY ON DAYS 1-5 ADMINISTERED EVERY 21 DAYS
     Route: 048

REACTIONS (1)
  - Product use in unapproved indication [Unknown]
